FAERS Safety Report 8052696-3 (Version None)
Quarter: 2012Q1

REPORT INFORMATION
  Report Type: 
  Country: None (occurrence: None)
  Receive Date: 20120118
  Receipt Date: 20120118
  Transmission Date: 20120608
  Serious: Yes (Other)
  Sender: FDA-Public Use
  Company Number: None

PATIENT
  Sex: Female
  Weight: 68.038 kg

DRUGS (1)
  1. AMOXICILLIN [Suspect]
     Indication: TOOTH INFECTION
     Dosage: 500 MG CAPSULE
     Route: 048
     Dates: start: 20120115, end: 20120115

REACTIONS (2)
  - EPISTAXIS [None]
  - BLOOD PRESSURE INCREASED [None]
